FAERS Safety Report 15769850 (Version 1)
Quarter: 2018Q4

REPORT INFORMATION
  Report Type: Report from Study
  Country: JP (occurrence: JP)
  Receive Date: 20181228
  Receipt Date: 20181228
  Transmission Date: 20190205
  Serious: Yes (Death, Hospitalization)
  Sender: FDA-Public Use
  Company Number: JP-ACTELION-A-CH2018-184111

PATIENT
  Age: 75 Year
  Sex: Female

DRUGS (9)
  1. OPSUMIT [Suspect]
     Active Substance: MACITENTAN
     Indication: PULMONARY ARTERIAL HYPERTENSION
     Dosage: 2.5 MG, QD
     Route: 048
     Dates: start: 20161209, end: 20161219
  2. FUROSEMIDE. [Concomitant]
     Active Substance: FUROSEMIDE
  3. OPSUMIT [Suspect]
     Active Substance: MACITENTAN
     Dosage: 5 MG, QD
     Route: 048
     Dates: start: 20161220, end: 20161225
  4. SPIRONOLACTONE. [Concomitant]
     Active Substance: SPIRONOLACTONE
  5. SAMSCA [Concomitant]
     Active Substance: TOLVAPTAN
  6. OPSUMIT [Suspect]
     Active Substance: MACITENTAN
     Dosage: 10 MG, QD
     Route: 048
     Dates: start: 20161226, end: 20171108
  7. URSO [Concomitant]
     Active Substance: URSODIOL
  8. NEXIUM [Concomitant]
     Active Substance: ESOMEPRAZOLE MAGNESIUM
  9. LIVACT [Concomitant]
     Active Substance: AMINO ACIDS

REACTIONS (5)
  - Hepatic cirrhosis [Fatal]
  - Blood bilirubin abnormal [Fatal]
  - Hepatic failure [Fatal]
  - Aspartate aminotransferase increased [Fatal]
  - Disease progression [Fatal]

NARRATIVE: CASE EVENT DATE: 201710
